FAERS Safety Report 22392510 (Version 1)
Quarter: 2023Q2

REPORT INFORMATION
  Report Type: Spontaneous
  Country: US (occurrence: US)
  Receive Date: 20230601
  Receipt Date: 20230601
  Transmission Date: 20230721
  Serious: No
  Sender: FDA-Public Use
  Company Number: US-SA-SAC20230530000994

PATIENT
  Sex: Male

DRUGS (1)
  1. DUPIXENT [Suspect]
     Active Substance: DUPILUMAB
     Dosage: 300 MG,FREQUENCY: OTHER
     Route: 058

REACTIONS (6)
  - Feeling hot [Unknown]
  - Paraesthesia [Unknown]
  - Arthralgia [Unknown]
  - Conjunctivitis [Unknown]
  - Eye discharge [Unknown]
  - Incorrect dose administered [Unknown]
